FAERS Safety Report 15254038 (Version 1)
Quarter: 2018Q4

REPORT INFORMATION
  Report Type: Spontaneous
  Country: FR (occurrence: FR)
  Receive Date: 20180808
  Receipt Date: 20180808
  Transmission Date: 20190204
  Serious: Yes (Hospitalization)
  Sender: FDA-Public Use
  Company Number: FR-AUROBINDO-AUR-APL-2018-039003

PATIENT
  Age: 65 Year
  Sex: Male
  Weight: 102 kg

DRUGS (1)
  1. TRAMADOL ARROW L.P. 100 MG PROLONGED RELEASE TABLETS USP 100MG [Suspect]
     Active Substance: TRAMADOL
     Indication: PROCEDURAL PAIN
     Dosage: 1 DOSAGE FORM
     Route: 048
     Dates: start: 20171103, end: 20171107

REACTIONS (5)
  - Vertigo [Recovered/Resolved]
  - Paraesthesia [Recovered/Resolved]
  - Somnolence [Recovered/Resolved]
  - Constipation [Recovered/Resolved]
  - Nausea [Recovered/Resolved]

NARRATIVE: CASE EVENT DATE: 20171106
